FAERS Safety Report 18410777 (Version 1)
Quarter: 2020Q4

REPORT INFORMATION
  Report Type: Report from Study
  Country: BR (occurrence: BR)
  Receive Date: 20201021
  Receipt Date: 20201021
  Transmission Date: 20210114
  Serious: Yes (Other)
  Sender: FDA-Public Use
  Company Number: NVSC2020BR280601

PATIENT
  Age: 74 Year
  Sex: Male
  Weight: 82 kg

DRUGS (8)
  1. COSENTYX [Concomitant]
     Active Substance: SECUKINUMAB
     Dosage: UNK, QMO  (IN THE ARM) (01 FULL PEN)
     Route: 058
     Dates: start: 20200922
  2. POTASSIUM CITRATE. [Concomitant]
     Active Substance: POTASSIUM CITRATE
     Dosage: UNK, QD (2 YEARS AGO)
     Route: 048
  3. PANTOPRAZOLE [Concomitant]
     Active Substance: PANTOPRAZOLE
     Indication: GASTROINTESTINAL DISORDER PROPHYLAXIS
     Dosage: 1 DF, QD (14 OR 16 YEARS AGO)
     Route: 048
  4. COSENTYX [Concomitant]
     Active Substance: SECUKINUMAB
     Indication: ANKYLOSING SPONDYLITIS
     Dosage: UNK, QW (IN THE ARM) (01 FULL PEN)
     Route: 058
     Dates: start: 20200729, end: 20200826
  5. TRAVOPROSTA [Concomitant]
     Active Substance: TRAVOPROST
     Indication: INTRAOCULAR PRESSURE INCREASED
     Dosage: 1 DRP (AT BED TIME) (START DATE: 2 MONTHS AGO) (MEDLEY) (OPTHAKMIC SOLUTION)
     Route: 047
  6. DUO-TRAVATAN [Concomitant]
     Active Substance: TIMOLOL MALEATE\TRAVOPROST
     Indication: INTRAOCULAR PRESSURE INCREASED
     Dosage: 1 DRP  (IN EACH EYE, AT BED TIME) (OPTHALMIC SOLUTION)
     Route: 047
     Dates: start: 2015
  7. POTASSIUM CITRATE. [Concomitant]
     Active Substance: POTASSIUM CITRATE
     Indication: RENAL DISORDER
     Dosage: UNK, QD
     Route: 048
     Dates: start: 2012
  8. GLAUTIMOL [Suspect]
     Active Substance: TIMOLOL MALEATE
     Indication: INTRAOCULAR PRESSURE INCREASED
     Dosage: 1 DRP (IN EACH EYE, AT BED TIME) (GLUTIMOL, ALCON 6,8 MG/ML) (OPTHALMIC SOLUTION) (START DATE: 2 MON
     Route: 047

REACTIONS (7)
  - Back pain [Not Recovered/Not Resolved]
  - Oedema peripheral [Recovering/Resolving]
  - Arthralgia [Not Recovered/Not Resolved]
  - Tuberculin test positive [Unknown]
  - Joint swelling [Recovering/Resolving]
  - Peripheral swelling [Recovering/Resolving]
  - Product availability issue [Unknown]

NARRATIVE: CASE EVENT DATE: 202008
